FAERS Safety Report 19357793 (Version 1)
Quarter: 2021Q2

REPORT INFORMATION
  Report Type: Spontaneous
  Country: US (occurrence: US)
  Receive Date: 20210602
  Receipt Date: 20210602
  Transmission Date: 20210717
  Serious: No
  Sender: FDA-Public Use
  Company Number: None

PATIENT
  Age: 35 Year
  Sex: Female
  Weight: 68 kg

DRUGS (1)
  1. FERUMOXYTOL (FERUMOXYTOL 30MG (IRON) ML/INJ) [Suspect]
     Active Substance: FERUMOXYTOL
     Indication: IRON DEFICIENCY ANAEMIA
     Dosage: ?          OTHER ROUTE:IV?
     Route: 042
     Dates: start: 20200715, end: 20200728

REACTIONS (5)
  - Urticaria [None]
  - Infusion related reaction [None]
  - Pruritus [None]
  - Swelling [None]
  - Rash [None]

NARRATIVE: CASE EVENT DATE: 20200728
